FAERS Safety Report 9247871 (Version 1)
Quarter: 2013Q1

REPORT INFORMATION
  Report Type: Spontaneous
  Country: US (occurrence: None)
  Receive Date: 20121130
  Receipt Date: 20121130
  Transmission Date: 20140127
  Serious: Yes (Other)
  Sender: FDA-Public Use
  Company Number: 343106

PATIENT
  Age: 73 Year
  Sex: Female
  Weight: 63.5 kg

DRUGS (6)
  1. NOVOLOG [Suspect]
     Indication: TYPE 1 DIABETES MELLITUS
     Dosage: 33 U, QD, 16U BEFORE BREAKFAST, 10U AT LUNCH, 7U AT DINNER, SUBCUTANEOUS
     Route: 058
  2. LEVEMIR [Suspect]
     Indication: TYPE 1 DIABETES MELLITUS
     Dosage: 30 U, QD IN AM, SUBCUTANEOUS
     Route: 058
  3. LIPITOR (ATORVASTATIN CALCIUM) [Concomitant]
  4. ASPIRIN (ACETYLSALICYLIC ACID) [Concomitant]
  5. LEVOTHYROXINE (LEVOTHYROXINE) [Concomitant]
  6. VESICARE (SOLIFENACIN SUCCINATE) [Concomitant]

REACTIONS (3)
  - Inappropriate schedule of drug administration [None]
  - Blood glucose fluctuation [None]
  - Hyperglycaemic unconsciousness [None]
